FAERS Safety Report 5401025-X (Version None)
Quarter: 2007Q3

REPORT INFORMATION
  Report Type: 
  Country: None (occurrence: None)
  Receive Date: 20070730
  Receipt Date: 20070720
  Transmission Date: 20080115
  Serious: Yes (Other)
  Sender: FDA-Public Use
  Company Number: NZ-ABBOTT-07P-118-0375289-00

PATIENT
  Sex: Female

DRUGS (2)
  1. EPILIM [Suspect]
     Indication: EPILEPSY
     Route: 065
     Dates: start: 19870101, end: 20060101
  2. EPILIM [Suspect]
     Indication: CONVULSION
     Route: 065
     Dates: start: 20060101

REACTIONS (4)
  - CONVULSION [None]
  - DRUG INEFFECTIVE [None]
  - ROAD TRAFFIC ACCIDENT [None]
  - TREMOR [None]
